FAERS Safety Report 23438519 (Version 1)
Quarter: 2024Q1

REPORT INFORMATION
  Report Type: Spontaneous
  Country: US (occurrence: US)
  Receive Date: 20240124
  Receipt Date: 20240124
  Transmission Date: 20240410
  Serious: No
  Sender: FDA-Public Use
  Company Number: US-ELI_LILLY_AND_COMPANY-US202401009612

PATIENT
  Age: 44 Year
  Sex: Male

DRUGS (2)
  1. MOUNJARO [Suspect]
     Active Substance: TIRZEPATIDE
     Indication: Blood glucose increased
     Dosage: UNK UNK, UNKNOWN
     Route: 065
  2. LUMIZYME [Suspect]
     Active Substance: ALGLUCOSIDASE ALFA
     Indication: Glycogen storage disease type II
     Dosage: 6450 DOSAGE FORM, 2/M (EVERY OTHER WEEK)
     Route: 042
     Dates: start: 20100830

REACTIONS (3)
  - Burning sensation [Unknown]
  - Blood glucose increased [Unknown]
  - Decreased appetite [Unknown]
